FAERS Safety Report 7668843-9 (Version None)
Quarter: 2011Q3

REPORT INFORMATION
  Report Type: 
  Country: None (occurrence: None)
  Receive Date: 20110808
  Receipt Date: 20110802
  Transmission Date: 20111222
  Serious: Yes (Hospitalization)
  Sender: FDA-Public Use
  Company Number: US-PFIZER INC-2011137429

PATIENT
  Sex: Female
  Weight: 32.653 kg

DRUGS (3)
  1. ADVIL LIQUI-GELS [Suspect]
     Indication: PYREXIA
     Dosage: 200 MG, DAILY
     Route: 048
     Dates: start: 20110607, end: 20110607
  2. FLOVENT [Concomitant]
     Dosage: 44 MCG 2 PUFFS BID
  3. FLOVENT [Concomitant]
     Dosage: 44MCG 2 PUFFS EVERY DAY

REACTIONS (1)
  - ANAPHYLACTIC REACTION [None]
